FAERS Safety Report 6477226-9 (Version None)
Quarter: 2009Q4

REPORT INFORMATION
  Report Type: 
  Country: None (occurrence: None)
  Receive Date: 20091207
  Receipt Date: 20091127
  Transmission Date: 20100525
  Serious: Yes (Hospitalization, Other)
  Sender: FDA-Public Use
  Company Number: PHHY2009JP47798

PATIENT
  Age: 48 Year
  Sex: Male

DRUGS (6)
  1. NEORAL [Suspect]
     Indication: LIVER TRANSPLANT
     Dosage: 200 MG
     Route: 048
     Dates: end: 20090407
  2. NEORAL [Suspect]
     Dosage: 1150 MG, ONCE/SINGLE
     Route: 048
     Dates: start: 20090407, end: 20090407
  3. CELLCEPT [Concomitant]
     Indication: LIVER TRANSPLANT
     Dosage: 250 MG DAILY
     Route: 048
  4. CELLCEPT [Concomitant]
     Dosage: 3250 MG, ONCE/SINGLE
     Route: 048
     Dates: start: 20090407
  5. ZEFFIX [Concomitant]
     Indication: LIVER TRANSPLANT
     Dosage: 2000 MG, ONCE/SINGLE
     Route: 048
     Dates: start: 20090407
  6. ZEFFIX [Concomitant]
     Dosage: 100 MG
     Route: 048

REACTIONS (4)
  - BLOOD CREATININE INCREASED [None]
  - GASTRIC LAVAGE [None]
  - IMMUNOSUPPRESSANT DRUG LEVEL INCREASED [None]
  - INTENTIONAL OVERDOSE [None]
